FAERS Safety Report 8087319-0 (Version None)
Quarter: 2012Q1

REPORT INFORMATION
  Report Type: 
  Country: None (occurrence: None)
  Receive Date: 20120128
  Receipt Date: 20110420
  Transmission Date: 20120608
  Serious: No
  Sender: FDA-Public Use
  Company Number: US-ABBOTT-11P-163-0720705-00

PATIENT
  Age: 39 Year
  Sex: Female

DRUGS (6)
  1. KLONOPIN [Concomitant]
     Indication: INSOMNIA
  2. HUMIRA [Suspect]
     Indication: PSORIASIS
     Dates: start: 20090101, end: 20100401
  3. HUMIRA [Suspect]
     Dates: start: 20101101
  4. PROZAC [Concomitant]
     Indication: ANXIETY
  5. KLONOPIN [Concomitant]
     Indication: ANXIETY
     Dosage: AT BEDTIME DAILY
  6. PROZAC [Concomitant]
     Indication: DEPRESSION

REACTIONS (5)
  - INCORRECT DRUG ADMINISTRATION DURATION [None]
  - POOR QUALITY DRUG ADMINISTERED [None]
  - PSORIASIS [None]
  - INCORRECT STORAGE OF DRUG [None]
  - DRUG EFFECT DECREASED [None]
